FAERS Safety Report 20646884 (Version 1)
Quarter: 2022Q1

REPORT INFORMATION
  Report Type: Other
  Country: None (occurrence: IE)
  Receive Date: 20220329
  Receipt Date: 20220329
  Transmission Date: 20220424
  Serious: Yes (Hospitalization, Other)
  Sender: FDA-Public Use
  Company Number: IE-AptaPharma Inc.-2127191

PATIENT
  Sex: Female

DRUGS (2)
  1. IBUPROFEN [Suspect]
     Active Substance: IBUPROFEN
     Indication: Arthralgia
     Route: 065
  2. IRON [Concomitant]
     Active Substance: IRON
     Route: 048

REACTIONS (2)
  - Small intestinal stenosis [Recovered/Resolved]
  - Small intestine ulcer [Recovered/Resolved]
